FAERS Safety Report 4511167-9 (Version None)
Quarter: 2004Q4

REPORT INFORMATION
  Report Type: 
  Country: None (occurrence: None)
  Receive Date: 20041128
  Receipt Date: 20040213
  Transmission Date: 20050328
  Serious: Yes (Hospitalization)
  Sender: FDA-Public Use
  Company Number: PHHO2004US02422

PATIENT
  Age: 55 Year
  Sex: Female
  Weight: 82 kg

DRUGS (3)
  1. FTY720 VS MYCOPHENOLATE MOFETIL [Suspect]
     Indication: RENAL TRANSPLANT
     Dosage: CODE NOT BROKEN
     Route: 048
     Dates: start: 20030916, end: 20040220
  2. NEORAL [Suspect]
     Indication: RENAL TRANSPLANT
     Dosage: NOT REPORTED
     Route: 048
     Dates: start: 20030916
  3. PREDNISONE [Concomitant]
     Indication: RENAL TRANSPLANT
     Dosage: NOT REPORTED
     Route: 048

REACTIONS (7)
  - BLOOD CREATININE INCREASED [None]
  - DIALYSIS [None]
  - DRUG INEFFECTIVE [None]
  - GLOMERULONEPHRITIS [None]
  - HYPERHIDROSIS [None]
  - KIDNEY TRANSPLANT REJECTION [None]
  - SERUM SICKNESS [None]
